FAERS Safety Report 25319474 (Version 1)
Quarter: 2025Q2

REPORT INFORMATION
  Report Type: Spontaneous
  Country: US (occurrence: None)
  Receive Date: 20250515
  Receipt Date: 20250515
  Transmission Date: 20250717
  Serious: Yes (Life-Threatening, Hospitalization, Other)
  Sender: FDA-CTU
  Company Number: None

PATIENT
  Age: 69 Year
  Sex: Female
  Weight: 67.05 kg

DRUGS (14)
  1. CIPRO [Suspect]
     Active Substance: CIPROFLOXACIN HYDROCHLORIDE
     Indication: Postoperative care
     Route: 048
     Dates: start: 20250507, end: 20250507
  2. LAMOTRIGINE [Concomitant]
     Active Substance: LAMOTRIGINE
  3. LEVETIRACETAM [Concomitant]
     Active Substance: LEVETIRACETAM
  4. Valtoco nasal rescue [Concomitant]
  5. HYDROXYCHLOROQUINE [Concomitant]
     Active Substance: HYDROXYCHLOROQUINE
  6. MEMANTINE [Concomitant]
     Active Substance: MEMANTINE
  7. DONEPEZIL [Concomitant]
     Active Substance: DONEPEZIL
  8. ALBUTEROL [Concomitant]
     Active Substance: ALBUTEROL
  9. Albuterol soln; [Concomitant]
  10. SYMBICORT [Concomitant]
     Active Substance: BUDESONIDE\FORMOTEROL FUMARATE DIHYDRATE
  11. MONTELUKAST [Concomitant]
     Active Substance: MONTELUKAST
  12. ACYCLOVIR [Concomitant]
     Active Substance: ACYCLOVIR
  13. Hemaplex (Iron) [Concomitant]
  14. VITAMIN D3 [Concomitant]
     Active Substance: CHOLECALCIFEROL

REACTIONS (1)
  - Seizure [None]

NARRATIVE: CASE EVENT DATE: 20250508
